FAERS Safety Report 9501417 (Version 1)
Quarter: 2013Q1

REPORT INFORMATION
  Report Type: Spontaneous
  Country: US (occurrence: None)
  Receive Date: 20130107
  Receipt Date: 20130107
  Transmission Date: 20140127
  Serious: No
  Sender: FDA-Public Use
  Company Number: PHEH2012US012059

PATIENT
  Age: 47 Year
  Sex: Female

DRUGS (8)
  1. GILENYA [Suspect]
     Indication: MULTIPLE SCLEROSIS
     Route: 048
     Dates: start: 20120208
  2. MIRALAX (MACROGOL) POWDER [Concomitant]
  3. VITAMIN D (ERGOCALCIFEROL), 1000U [Concomitant]
  4. CRESTOR (ROSUVASTATIN CALCIUM) TABLET [Concomitant]
  5. BACLOFEN (BACLOFEN) TABLET [Concomitant]
  6. PROVIGIL (MODAFINIL), 100 MG [Concomitant]
  7. LIPITOR (ATORVASTATIN CALCIUM) [Concomitant]
  8. JEVITY (CORN OIL, ELECTROLYTES NOS, FATTY ACIDS NOS, GLYCINE MAX SEED OIL, MINERALS NOS, POTASSIUM BICARBONATE, POTASSIUM BITARTRATE, SOYA OIL, STARCH MAIZE, VITAMINS NOS, ZEA MAYS OIL, ZEA MAYS SEED) LIQUID [Concomitant]

REACTIONS (4)
  - Crying [None]
  - Speech disorder [None]
  - Dysphagia [None]
  - Mobility decreased [None]
